FAERS Safety Report 15266484 (Version 4)
Quarter: 2019Q2

REPORT INFORMATION
  Report Type: Spontaneous
  Country: CA (occurrence: CA)
  Receive Date: 20180810
  Receipt Date: 20190530
  Transmission Date: 20190711
  Serious: Yes (Hospitalization, Other)
  Sender: FDA-Public Use
  Company Number: CA-PFIZER INC-2018318379

PATIENT
  Age: 77 Year
  Sex: Male

DRUGS (8)
  1. REMICADE [Suspect]
     Active Substance: INFLIXIMAB
     Dosage: 5 MG/KG, UNK
     Route: 042
  2. CORTISONE [Concomitant]
     Active Substance: CORTISONE\HYDROCORTISONE
     Dosage: UNK
  3. ACTEMRA [Suspect]
     Active Substance: TOCILIZUMAB
     Dosage: 800 MG, MONTHLY
     Route: 042
  4. HUMIRA [Suspect]
     Active Substance: ADALIMUMAB
     Dosage: 40 MG, 2X/WEEK (2 EVERY 1 WEEK)
     Route: 058
  5. METHOTREXATE SODIUM. [Suspect]
     Active Substance: METHOTREXATE SODIUM
     Indication: PSORIASIS
     Dosage: 25 MG, WEEKLY
     Route: 058
  6. RITUXAN [Suspect]
     Active Substance: RITUXIMAB
     Dosage: 1000 MG, 1 EVERY 15 DAYS
     Route: 042
  7. SULFASALAZINE. [Suspect]
     Active Substance: SULFASALAZINE
     Dosage: 500 MG, 2X/DAY
  8. APO-HYDROXYQUINE [Suspect]
     Active Substance: HYDROXYCHLOROQUINE SULFATE
     Dosage: 400 MG, 1X/DAY
     Route: 048

REACTIONS (8)
  - Arthritis bacterial [Not Recovered/Not Resolved]
  - Synovitis [Unknown]
  - Tachycardia [Unknown]
  - Type 2 diabetes mellitus [Not Recovered/Not Resolved]
  - Nausea [Not Recovered/Not Resolved]
  - Drug ineffective [Not Recovered/Not Resolved]
  - Abscess [Not Recovered/Not Resolved]
  - Bladder transitional cell carcinoma [Not Recovered/Not Resolved]
